FAERS Safety Report 25709720 (Version 1)
Quarter: 2025Q3

REPORT INFORMATION
  Report Type: Spontaneous
  Country: GB (occurrence: GB)
  Receive Date: 20250821
  Receipt Date: 20250821
  Transmission Date: 20251020
  Serious: Yes (Hospitalization)
  Sender: MALLINCKRODT
  Company Number: GB-MALLINCKRODT-MNK202505125

PATIENT
  Age: 31 Year
  Sex: Male
  Weight: 61 kg

DRUGS (3)
  1. UVADEX [Suspect]
     Active Substance: METHOXSALEN
     Indication: Graft versus host disease
  2. ANTICOAGULANT CITRATE DEXTROSE SOLUTION (ACD) NOS [Concomitant]
     Active Substance: CITRIC ACID MONOHYDRATE\DEXTROSE\SODIUM CITRATE
     Indication: Anticoagulant therapy
  3. CITRATE [Concomitant]
     Active Substance: CITRIC ACID MONOHYDRATE

REACTIONS (7)
  - Chest pain [Recovered/Resolved]
  - Sinus tachycardia [Recovered/Resolved]
  - Electrocardiogram ST segment elevation [Recovered/Resolved]
  - Electrocardiogram T wave peaked [Recovered/Resolved]
  - Fibrin D dimer increased [Unknown]
  - Hypotension [Unknown]
  - Product use in unapproved indication [Unknown]

NARRATIVE: CASE EVENT DATE: 20250812
